FAERS Safety Report 11763079 (Version 1)
Quarter: 2015Q4

REPORT INFORMATION
  Report Type: Spontaneous
  Country: US (occurrence: US)
  Receive Date: 20151120
  Receipt Date: 20151120
  Transmission Date: 20160304
  Serious: No
  Sender: FDA-Public Use
  Company Number: US-ELI_LILLY_AND_COMPANY-US201302004537

PATIENT
  Age: 66 Year
  Sex: Female

DRUGS (2)
  1. FORTEO [Suspect]
     Active Substance: TERIPARATIDE
     Indication: OSTEOPOROSIS
     Dosage: 20 UG, QD
     Dates: start: 20130205, end: 20130225
  2. RECLAST [Concomitant]
     Active Substance: ZOLEDRONIC ACID

REACTIONS (9)
  - Device damage [Unknown]
  - Blood calcium abnormal [Unknown]
  - Shunt malfunction [Not Recovered/Not Resolved]
  - Injection site erythema [Unknown]
  - Injection site bruising [Not Recovered/Not Resolved]
  - Drug administered at inappropriate site [Unknown]
  - Intentional product misuse [Not Recovered/Not Resolved]
  - Pain in extremity [Unknown]
  - Vitamin D increased [Unknown]

NARRATIVE: CASE EVENT DATE: 201302
